APPROVED DRUG PRODUCT: DAPTOMYCIN
Active Ingredient: DAPTOMYCIN
Strength: 350MG/VIAL
Dosage Form/Route: POWDER;INTRAVENOUS
Application: A213396 | Product #001
Applicant: FRESENIUS KABI USA LLC
Approved: Aug 1, 2024 | RLD: No | RS: No | Type: DISCN